FAERS Safety Report 4842272-5 (Version None)
Quarter: 2005Q4

REPORT INFORMATION
  Report Type: 
  Country: None (occurrence: None)
  Receive Date: 20051125
  Receipt Date: 20051115
  Transmission Date: 20060501
  Serious: Yes (Other)
  Sender: FDA-Public Use
  Company Number: 2005156688

PATIENT
  Age: 79 Year
  Sex: Female
  Weight: 56.6996 kg

DRUGS (4)
  1. CELEBREX [Suspect]
     Indication: ILL-DEFINED DISORDER
  2. NEXIUM [Concomitant]
  3. CYMBALTA [Concomitant]
  4. SYNTHROID [Concomitant]

REACTIONS (7)
  - ASTHENIA [None]
  - BACK PAIN [None]
  - DYSSTASIA [None]
  - NEOPLASM MALIGNANT [None]
  - NEPHRECTOMY [None]
  - OSTEOPENIA [None]
  - PNEUMONECTOMY [None]
